FAERS Safety Report 17417055 (Version 2)
Quarter: 2020Q1

REPORT INFORMATION
  Report Type: Spontaneous
  Country: FR (occurrence: FR)
  Receive Date: 20200214
  Receipt Date: 20200226
  Transmission Date: 20200409
  Serious: Yes (Other)
  Sender: FDA-Public Use
  Company Number: FR-MYLANLABS-2020M1016231

PATIENT
  Age: 13 Year
  Sex: Male

DRUGS (3)
  1. ARSENIC TRIOXIDE. [Suspect]
     Active Substance: ARSENIC TRIOXIDE
     Indication: ACUTE PROMYELOCYTIC LEUKAEMIA
     Dosage: 0.15 MILLIGRAM/KILOGRAM
     Route: 042
  2. TRETINOIN. [Suspect]
     Active Substance: TRETINOIN
     Indication: ACUTE PROMYELOCYTIC LEUKAEMIA
     Dosage: 25 MILLIGRAM/SQ. METER
     Route: 048
  3. DEXAMETHASONE. [Suspect]
     Active Substance: DEXAMETHASONE
     Indication: DIFFERENTIATION SYNDROME
     Dosage: 20 MILLIGRAM/SQ. METER, QD
     Route: 042

REACTIONS (2)
  - Idiopathic intracranial hypertension [Unknown]
  - Hypokalaemia [Unknown]
